FAERS Safety Report 6600551-5 (Version None)
Quarter: 2010Q1

REPORT INFORMATION
  Report Type: 
  Country: None (occurrence: None)
  Receive Date: 20100223
  Receipt Date: 20100223
  Transmission Date: 20100710
  Serious: No
  Sender: FDA-Public Use
  Company Number: None

PATIENT
  Sex: Female
  Weight: 56.246 kg

DRUGS (4)
  1. BUPROPION HCL [Suspect]
     Indication: ANXIETY
     Dosage: BUPROPION 150 MG PO
     Route: 048
     Dates: start: 20080401
  2. BUPROPION HCL [Suspect]
     Indication: DEPRESSION
     Dosage: BUPROPION 150 MG PO
     Route: 048
     Dates: start: 20080401
  3. BUPROPION HCL [Suspect]
     Indication: ANXIETY
     Dosage: BUPROPION 150 MG PO
     Route: 048
     Dates: start: 20100101
  4. BUPROPION HCL [Suspect]
     Indication: DEPRESSION
     Dosage: BUPROPION 150 MG PO
     Route: 048
     Dates: start: 20100101

REACTIONS (5)
  - AGGRESSION [None]
  - DISTURBANCE IN ATTENTION [None]
  - INSOMNIA [None]
  - IRRITABILITY [None]
  - MOOD ALTERED [None]
